FAERS Safety Report 16830621 (Version 1)
Quarter: 2019Q3

REPORT INFORMATION
  Report Type: Spontaneous
  Country: AU (occurrence: AU)
  Receive Date: 20190920
  Receipt Date: 20190920
  Transmission Date: 20191005
  Serious: Yes (Other)
  Sender: FDA-Public Use
  Company Number: AU-ABBVIE-19K-008-2928250-00

PATIENT
  Age: 26 Year
  Sex: Female

DRUGS (7)
  1. INFLIXIMAB [Suspect]
     Active Substance: INFLIXIMAB
     Dosage: DOSE INCREASED
     Route: 065
  2. INFLIXIMAB [Suspect]
     Active Substance: INFLIXIMAB
     Dosage: DOSE INCREASED
     Route: 065
  3. INFLIXIMAB [Suspect]
     Active Substance: INFLIXIMAB
     Indication: PRODUCT USED FOR UNKNOWN INDICATION
     Route: 065
  4. HUMIRA [Suspect]
     Active Substance: ADALIMUMAB
     Indication: CROHN^S DISEASE
     Route: 058
  5. AZATHIOPRINE. [Suspect]
     Active Substance: AZATHIOPRINE
     Dosage: DOSE INCREASED
     Route: 065
  6. HUMIRA [Suspect]
     Active Substance: ADALIMUMAB
     Dosage: DOSE INCREASED
     Route: 058
  7. AZATHIOPRINE. [Suspect]
     Active Substance: AZATHIOPRINE
     Indication: PRODUCT USED FOR UNKNOWN INDICATION
     Route: 065

REACTIONS (17)
  - Fistula discharge [Unknown]
  - Anal fistula [Unknown]
  - Colitis [Recovering/Resolving]
  - Frequent bowel movements [Unknown]
  - Proctitis [Unknown]
  - Embolism arterial [Unknown]
  - Abdominal distension [Not Recovered/Not Resolved]
  - Anorectal discomfort [Recovering/Resolving]
  - Drug specific antibody present [Unknown]
  - Crohn^s disease [Recovering/Resolving]
  - Anorectal disorder [Not Recovered/Not Resolved]
  - Adverse event [Not Recovered/Not Resolved]
  - Drug level decreased [Unknown]
  - Impaired healing [Not Recovered/Not Resolved]
  - Staphylococcal infection [Unknown]
  - Drug level abnormal [Unknown]
  - Gastrointestinal disorder [Recovering/Resolving]
